FAERS Safety Report 7405787 (Version 2)
Quarter: 2020Q3

REPORT INFORMATION
  Report Type: Spontaneous
  Country: FR (occurrence: FR)
  Receive Date: 20100601
  Receipt Date: 20100625
  Transmission Date: 20201104
  Serious: Yes (Hospitalization)
  Sender: FDA-Public Use
  Company Number: B0657762A

PATIENT
  Age: 0 Year
  Sex: Female

DRUGS (20)
  1. PROPOFOL. [Suspect]
     Active Substance: PROPOFOL
     Indication: ANAESTHESIA
     Route: 042
     Dates: start: 20100115, end: 20100115
  2. BETADINE [Suspect]
     Active Substance: POVIDONE-IODINE
     Indication: PREOPERATIVE CARE
     Route: 061
     Dates: start: 20100114, end: 20100115
  3. SUPRANE [Suspect]
     Active Substance: DESFLURANE
     Indication: ANAESTHESIA
     Route: 055
     Dates: start: 20100115, end: 20100115
  4. EPHEDRINE. [Suspect]
     Active Substance: EPHEDRINE
     Indication: ANAESTHESIA
     Route: 042
     Dates: start: 20100115, end: 20100115
  5. CIPROFIBRATE [Concomitant]
     Active Substance: CIPROFIBRATE
     Route: 065
  6. AUGMENTIN [Suspect]
     Active Substance: AMOXICILLIN\CLAVULANATE POTASSIUM
     Indication: PROPHYLAXIS
     Dosage: 2G PER DAY
     Route: 042
     Dates: start: 20100115, end: 20100115
  7. SUFENTA [Suspect]
     Active Substance: SUFENTANIL CITRATE
     Indication: ANAESTHESIA
     Route: 042
     Dates: start: 20100115, end: 20100115
  8. NORMACOL [Suspect]
     Active Substance: HERBALS\KARAYA GUM
     Indication: PREMEDICATION
     Route: 054
     Dates: start: 20100114, end: 20100114
  9. PERFALGAN [Suspect]
     Active Substance: ACETAMINOPHEN
     Indication: PRODUCT USED FOR UNKNOWN INDICATION
     Dosage: 1G THREE TIMES PER DAY
     Route: 042
     Dates: start: 20100115, end: 20100117
  10. ARTOTEC [Concomitant]
     Route: 065
     Dates: end: 201001
  11. RINGERS SOLUTION [Concomitant]
     Active Substance: CALCIUM CHLORIDE\POTASSIUM CHLORIDE\SODIUM CHLORIDE
     Route: 065
     Dates: start: 20100115
  12. ATRACURIUM [Suspect]
     Active Substance: ATRACURIUM
     Indication: ANAESTHESIA
     Route: 042
     Dates: start: 20100115, end: 20100115
  13. NAROPIN [Suspect]
     Active Substance: ROPIVACAINE HYDROCHLORIDE
     Indication: ANAESTHESIA
     Dosage: 15MG PER DAY
     Route: 026
     Dates: start: 20100115, end: 20100115
  14. FLUDEX (INDAPAMIDE) [Concomitant]
     Active Substance: INDAPAMIDE
     Route: 065
  15. BETADINE [Suspect]
     Active Substance: POVIDONE-IODINE
     Route: 067
     Dates: start: 20100115, end: 20100115
  16. ACUPAN [Suspect]
     Active Substance: NEFOPAM HYDROCHLORIDE
     Indication: ANAESTHESIA
     Route: 042
     Dates: start: 20100115, end: 20100117
  17. DROPERIDOL. [Suspect]
     Active Substance: DROPERIDOL
     Indication: ANAESTHESIA
     Dosage: 1.25MG SINGLE DOSE
     Route: 042
     Dates: start: 20100115, end: 20100115
  18. ATROPINE. [Suspect]
     Active Substance: ATROPINE
     Indication: ANAESTHESIA
     Dosage: 1MG SINGLE DOSE
     Route: 042
     Dates: start: 20100115, end: 20100115
  19. PHYSIOLOGICAL SERUM [Concomitant]
     Route: 065
     Dates: start: 20100115
  20. NEURONTIN [Concomitant]
     Active Substance: GABAPENTIN
     Indication: PREMEDICATION
     Dosage: 600MG PER DAY
     Route: 065
     Dates: start: 20100114, end: 20100115

REACTIONS (4)
  - Acute kidney injury [Recovering/Resolving]
  - Blood creatinine increased [Recovering/Resolving]
  - Oliguria [Recovered/Resolved]
  - Product quality issue [Unknown]

NARRATIVE: CASE EVENT DATE: 20100115
